FAERS Safety Report 5893283-2 (Version None)
Quarter: 2008Q3

REPORT INFORMATION
  Report Type: 
  Country: None (occurrence: None)
  Receive Date: 20080923
  Receipt Date: 20080912
  Transmission Date: 20090109
  Serious: Yes (Hospitalization)
  Sender: FDA-Public Use
  Company Number: A0748629A

PATIENT
  Age: 42 Year
  Sex: Male
  Weight: 65.9 kg

DRUGS (5)
  1. ROSIGLITAZONE MALEATE [Suspect]
     Indication: DIABETES MELLITUS
     Route: 048
  2. LISINOPRIL [Concomitant]
  3. LIPITOR [Concomitant]
  4. ZYRTEC [Concomitant]
  5. RANITIDINE [Concomitant]

REACTIONS (1)
  - HEART INJURY [None]
